FAERS Safety Report 21440642 (Version 1)
Quarter: 2022Q4

REPORT INFORMATION
  Report Type: Spontaneous
  Country: US (occurrence: US)
  Receive Date: 20221011
  Receipt Date: 20221011
  Transmission Date: 20230113
  Serious: Yes (Other)
  Sender: FDA-Public Use
  Company Number: US-BRISTOL-MYERS SQUIBB COMPANY-2022-114039

PATIENT
  Age: 62 Year
  Sex: Female
  Weight: 50.8 kg

DRUGS (2)
  1. OPDUALAG [Suspect]
     Active Substance: NIVOLUMAB\RELATLIMAB-RMBW
     Indication: Metastatic malignant melanoma
     Dosage: DOSE UNKNOWN OTHER THAN IT WAS 1 BAG THAT ONLY TOOK 30 MINUTES TO INFUSE.
     Route: 065
     Dates: start: 20220420, end: 20220713
  2. THYROID [Concomitant]
     Active Substance: LEVOTHYROXINE\LIOTHYRONINE
     Indication: Thyroid disorder
     Route: 065

REACTIONS (11)
  - Rash [Not Recovered/Not Resolved]
  - Dyspnoea [Recovering/Resolving]
  - Hypothalamo-pituitary disorder [Unknown]
  - Adrenal disorder [Unknown]
  - Weight decreased [Recovering/Resolving]
  - Gallbladder disorder [Not Recovered/Not Resolved]
  - Drug ineffective [Unknown]
  - Metastases to central nervous system [Unknown]
  - Metastases to lung [Unknown]
  - Malignant neoplasm progression [Unknown]
  - Mobility decreased [Unknown]

NARRATIVE: CASE EVENT DATE: 20220101
